FAERS Safety Report 13065905 (Version 1)
Quarter: 2016Q4

REPORT INFORMATION
  Report Type: Spontaneous
  Country: JP (occurrence: JP)
  Receive Date: 20161227
  Receipt Date: 20161227
  Transmission Date: 20170207
  Serious: Yes (Other)
  Sender: FDA-Public Use
  Company Number: JP-GLAXOSMITHKLINE-JP2016JPN188671

PATIENT

DRUGS (1)
  1. RELVAR ELLIPTA [Suspect]
     Active Substance: FLUTICASONE FUROATE\VILANTEROL TRIFENATATE
     Indication: ASTHMA
     Dosage: UNK UNK, PRN
     Route: 055

REACTIONS (3)
  - Diabetes mellitus inadequate control [Unknown]
  - Off label use [Unknown]
  - Product use issue [Unknown]
